FAERS Safety Report 8500656-8 (Version None)
Quarter: 2012Q3

REPORT INFORMATION
  Report Type: 
  Country: None (occurrence: None)
  Receive Date: 20120710
  Receipt Date: 20120702
  Transmission Date: 20120928
  Serious: Yes (Other)
  Sender: FDA-Public Use
  Company Number: GB-ROCHE-1083736

PATIENT
  Sex: Female

DRUGS (1)
  1. ACTEMRA [Suspect]
     Indication: PRODUCT USED FOR UNKNOWN INDICATION

REACTIONS (6)
  - VULVOVAGINAL DISCOMFORT [None]
  - MOUTH ULCERATION [None]
  - HEADACHE [None]
  - SKIN EXFOLIATION [None]
  - SKIN DISORDER [None]
  - POLLAKIURIA [None]
